FAERS Safety Report 10502926 (Version 3)
Quarter: 2015Q2

REPORT INFORMATION
  Report Type: Report from Study
  Country: US (occurrence: US)
  Receive Date: 20141007
  Receipt Date: 20150630
  Transmission Date: 20150821
  Serious: Yes (Hospitalization, Other)
  Sender: FDA-Public Use
  Company Number: US-SA-2014SA135745

PATIENT
  Age: 32 Year
  Sex: Male

DRUGS (8)
  1. FABRAZYME [Suspect]
     Active Substance: AGALSIDASE BETA
     Indication: FABRY^S DISEASE
     Route: 041
  2. LASIX [Concomitant]
     Active Substance: FUROSEMIDE
     Indication: PREMEDICATION
  3. PARACETAMOL [Concomitant]
     Active Substance: ACETAMINOPHEN
     Indication: PREMEDICATION
  4. FABRAZYME [Suspect]
     Active Substance: AGALSIDASE BETA
     Indication: FABRY^S DISEASE
     Dosage: FREQUENCY: Q2
     Route: 041
     Dates: start: 200505
  5. CLONAZEPAM. [Concomitant]
     Active Substance: CLONAZEPAM
  6. FABRAZYME [Suspect]
     Active Substance: AGALSIDASE BETA
     Indication: FABRY^S DISEASE
     Route: 041
     Dates: start: 201203
  7. VISTARIL [Concomitant]
     Active Substance: HYDROXYZINE PAMOATE
     Indication: PREMEDICATION
  8. TRAMADOL [Concomitant]
     Active Substance: TRAMADOL
     Indication: PREMEDICATION

REACTIONS (10)
  - Disturbance in attention [Unknown]
  - Cardiac pacemaker insertion [Unknown]
  - Subcutaneous abscess [Unknown]
  - Syncope [Unknown]
  - Renal impairment [Not Recovered/Not Resolved]
  - Hyperhidrosis [Unknown]
  - Cardiac disorder [Not Recovered/Not Resolved]
  - Atrial fibrillation [Not Recovered/Not Resolved]
  - Speech disorder [Unknown]
  - Dizziness [Not Recovered/Not Resolved]

NARRATIVE: CASE EVENT DATE: 2014
